FAERS Safety Report 15295838 (Version 1)
Quarter: 2018Q3

REPORT INFORMATION
  Report Type: Spontaneous
  Country: GB (occurrence: GB)
  Receive Date: 20180820
  Receipt Date: 20180820
  Transmission Date: 20181010
  Serious: Yes (Other)
  Sender: FDA-Public Use
  Company Number: PHHY2018GB075846

PATIENT
  Age: 72 Year
  Sex: Female

DRUGS (1)
  1. TEGRETOL [Suspect]
     Active Substance: CARBAMAZEPINE
     Indication: EPILEPSY
     Dosage: 1 DF, QD
     Route: 048

REACTIONS (4)
  - Sleep disorder [Unknown]
  - Dizziness [Unknown]
  - Atrioventricular block [Unknown]
  - Loss of consciousness [Unknown]
